FAERS Safety Report 12665816 (Version 1)
Quarter: 2016Q3

REPORT INFORMATION
  Report Type: Spontaneous
  Country: US (occurrence: US)
  Receive Date: 20160818
  Receipt Date: 20160818
  Transmission Date: 20161109
  Serious: Yes (Death)
  Sender: FDA-Public Use
  Company Number: US-BION-20160373

PATIENT
  Age: 34 Year
  Sex: Male

DRUGS (4)
  1. 7-AMINOCLONAZEPAM [Concomitant]
     Active Substance: CLONAZEPAM
  2. LOPRAMIDE HCL CAPSULES [Suspect]
     Active Substance: LOPERAMIDE HYDROCHLORIDE
     Route: 048
  3. CITALOPRAM [Concomitant]
     Active Substance: CITALOPRAM HYDROBROMIDE
  4. TRAZODONE [Concomitant]
     Active Substance: TRAZODONE HYDROCHLORIDE

REACTIONS (1)
  - Drug abuse [Fatal]
